FAERS Safety Report 20845558 (Version 2)
Quarter: 2022Q2

REPORT INFORMATION
  Report Type: Spontaneous
  Country: JP (occurrence: JP)
  Receive Date: 20220518
  Receipt Date: 20220527
  Transmission Date: 20220720
  Serious: Yes (Death, Hospitalization, Other)
  Sender: FDA-Public Use
  Company Number: JP-MSD-M2022-18288

PATIENT
  Age: 75 Year
  Sex: Male

DRUGS (3)
  1. KEYTRUDA [Suspect]
     Active Substance: PEMBROLIZUMAB
     Indication: Tongue carcinoma stage IV
     Dosage: 200 MILLIGRAM, Q3W
     Route: 041
     Dates: start: 20220316, end: 20220406
  2. CISPLATIN [Concomitant]
     Active Substance: CISPLATIN
     Dosage: 100 MILLIGRAM/SQ. METER, Q3W
     Route: 041
     Dates: start: 20220316, end: 20220406
  3. FLUOROURACIL [Concomitant]
     Active Substance: FLUOROURACIL
     Dosage: 1000 MILLIGRAM/SQ. METER, QD, CONTINUOUS ADMINISTRATION FOR 4 DAYS EVERY 3 WEEKS
     Route: 041
     Dates: start: 20220316, end: 20220406

REACTIONS (1)
  - Cardiac failure [Fatal]

NARRATIVE: CASE EVENT DATE: 20220428
